FAERS Safety Report 6703754-4 (Version None)
Quarter: 2010Q2

REPORT INFORMATION
  Report Type: 
  Country: None (occurrence: None)
  Receive Date: 20100428
  Receipt Date: 20091209
  Transmission Date: 20101027
  Serious: Yes (Hospitalization, Other)
  Sender: FDA-Public Use
  Company Number: 003078

PATIENT
  Sex: Female
  Weight: 58.8 kg

DRUGS (5)
  1. CERTOLIZUMAB PEGOL (CERTOLIZUMAB PEGOL) [Suspect]
     Indication: RHEUMATOID ARTHRITIS
     Dosage: 400 MG 1X/2 WEEKS, SUBCUTANEOUS), (400 MG 1X/2 WEEKS SUBCUTANEOUS), 200 MG 1X/2 WEEKS SUBCUTANEOUS
     Route: 058
     Dates: start: 20050901, end: 20060817
  2. CERTOLIZUMAB PEGOL (CERTOLIZUMAB PEGOL) [Suspect]
     Indication: RHEUMATOID ARTHRITIS
     Dosage: 400 MG 1X/2 WEEKS, SUBCUTANEOUS), (400 MG 1X/2 WEEKS SUBCUTANEOUS), 200 MG 1X/2 WEEKS SUBCUTANEOUS
     Route: 058
     Dates: start: 20060831, end: 20071206
  3. CERTOLIZUMAB PEGOL (CERTOLIZUMAB PEGOL) [Suspect]
     Indication: RHEUMATOID ARTHRITIS
     Dosage: 400 MG 1X/2 WEEKS, SUBCUTANEOUS), (400 MG 1X/2 WEEKS SUBCUTANEOUS), 200 MG 1X/2 WEEKS SUBCUTANEOUS
     Route: 058
     Dates: start: 20071220
  4. METHOTREXATE [Concomitant]
  5. FOLIC ACID [Concomitant]

REACTIONS (1)
  - CHOLELITHIASIS [None]
